FAERS Safety Report 10029872 (Version 1)
Quarter: 2014Q1

REPORT INFORMATION
  Report Type: Spontaneous
  Country: US (occurrence: None)
  Receive Date: 20140305
  Receipt Date: 20140305
  Transmission Date: 20141002
  Serious: Yes (Hospitalization, Other)
  Sender: FDA-Public Use
  Company Number: M2014-002

PATIENT
  Age: 43 Year
  Sex: Male

DRUGS (3)
  1. ALLERGENIC EXTRACT [Suspect]
     Indication: HYPERSENSITIVITY
     Dates: start: 20130429
  2. ELESTAT [Concomitant]
  3. FLUTICASONE [Concomitant]

REACTIONS (4)
  - Urticaria [None]
  - Throat irritation [None]
  - Dyspnoea [None]
  - Swelling face [None]
